FAERS Safety Report 7901760-5 (Version None)
Quarter: 2011Q4

REPORT INFORMATION
  Report Type: 
  Country: None (occurrence: None)
  Receive Date: 20111108
  Receipt Date: 20111031
  Transmission Date: 20120403
  Serious: Yes (Hospitalization, Other)
  Sender: FDA-Public Use
  Company Number: US-BAYER-2011-050468

PATIENT
  Age: 37 Year
  Sex: Female
  Weight: 63.492 kg

DRUGS (12)
  1. SUCRALFATE [Concomitant]
  2. IBUPROFEN [Concomitant]
  3. YAZ [Suspect]
     Indication: ACNE
     Dosage: UNK
     Dates: start: 20090101, end: 20090101
  4. CIPRO [Concomitant]
  5. FLUCONAZOLE [Concomitant]
  6. OMEPRAZOLE [Concomitant]
  7. AZITHROMYCIN [Concomitant]
  8. NITROFURANTOIN [Concomitant]
  9. KETOCONAZOLE [Concomitant]
  10. FLUTICASONE PROPIONATE [Concomitant]
  11. CLINDAMYCIN [Concomitant]
  12. PRENATE DHA [Concomitant]

REACTIONS (4)
  - BILIARY DYSKINESIA [None]
  - INJURY [None]
  - GALLBLADDER DISORDER [None]
  - PAIN [None]
